FAERS Safety Report 7964925-2 (Version None)
Quarter: 2011Q4

REPORT INFORMATION
  Report Type: 
  Country: None (occurrence: None)
  Receive Date: 20111208
  Receipt Date: 20111208
  Transmission Date: 20120403
  Serious: Yes (Other)
  Sender: FDA-Public Use
  Company Number: None

PATIENT
  Age: 60 Year
  Sex: Male
  Weight: 83.914 kg

DRUGS (2)
  1. GAVILYTE-G SOLUTION [Suspect]
     Indication: COLONOSCOPY
     Dosage: 8OZ
     Route: 048
     Dates: start: 20111204, end: 20111204
  2. RED YEAST RICE PLUS COQ-10 [Concomitant]

REACTIONS (4)
  - BLOOD PRESSURE INCREASED [None]
  - ANGINA PECTORIS [None]
  - SWELLING FACE [None]
  - TREMOR [None]
